FAERS Safety Report 4567186-X (Version None)
Quarter: 2005Q1

REPORT INFORMATION
  Report Type: 
  Country: None (occurrence: None)
  Receive Date: 20050201
  Receipt Date: 20050127
  Transmission Date: 20050727
  Serious: Yes (Other)
  Sender: FDA-Public Use
  Company Number: CA-GLAXOSMITHKLINE-A0542885A

PATIENT
  Age: 9 Year
  Sex: Male

DRUGS (1)
  1. DEXEDRINE [Suspect]
     Indication: DRUG USE FOR UNKNOWN INDICATION
     Dosage: 10MG TWICE PER DAY
     Route: 048
     Dates: start: 20041109, end: 20041101

REACTIONS (2)
  - HALLUCINATION, TACTILE [None]
  - HALLUCINATION, VISUAL [None]
